FAERS Safety Report 5832715-2 (Version None)
Quarter: 2008Q3

REPORT INFORMATION
  Report Type: 
  Country: None (occurrence: None)
  Receive Date: 20080804
  Receipt Date: 20080728
  Transmission Date: 20090109
  Serious: Yes (Other)
  Sender: FDA-Public Use
  Company Number: PHHY2008BE15430

PATIENT
  Sex: Male
  Weight: 3.22 kg

DRUGS (1)
  1. CATAFLAM [Suspect]
     Dosage: MATERNAL DOSE: 3X50 MG DAILY FOR 2 MONTHS

REACTIONS (3)
  - PETECHIAE [None]
  - RASH [None]
  - VASCULITIS [None]
